FAERS Safety Report 22704046 (Version 5)
Quarter: 2024Q1

REPORT INFORMATION
  Report Type: Spontaneous
  Country: US (occurrence: US)
  Receive Date: 20230714
  Receipt Date: 20240222
  Transmission Date: 20240409
  Serious: Yes (Other)
  Sender: FDA-Public Use
  Company Number: US-BRISTOL-MYERS SQUIBB COMPANY-2023-099050

PATIENT
  Age: 69 Year
  Sex: Male

DRUGS (2)
  1. POMALYST [Suspect]
     Active Substance: POMALIDOMIDE
     Indication: Plasma cell myeloma
     Route: 048
  2. POMALYST [Suspect]
     Active Substance: POMALIDOMIDE
     Dosage: 2 MG DAILY
     Route: 048

REACTIONS (12)
  - Oral herpes [Unknown]
  - Constipation [Unknown]
  - Pollakiuria [Recovered/Resolved]
  - Pain in extremity [Unknown]
  - Pain [Unknown]
  - Spinal pain [Unknown]
  - Sleep disorder [Unknown]
  - Asthenia [Unknown]
  - Spinal disorder [Unknown]
  - Pyrexia [Unknown]
  - Spinal fracture [Unknown]
  - Infection [Unknown]

NARRATIVE: CASE EVENT DATE: 20230101
